FAERS Safety Report 14099018 (Version 1)
Quarter: 2017Q4

REPORT INFORMATION
  Report Type: Spontaneous
  Country: US (occurrence: US)
  Receive Date: 20171017
  Receipt Date: 20171017
  Transmission Date: 20180321
  Serious: No
  Sender: FDA-Public Use
  Company Number: US-BIOCOMPATIBLES UK LTD-2017BTG01334

PATIENT
  Age: 6 Year
  Sex: Male

DRUGS (1)
  1. CROFAB [Suspect]
     Active Substance: CROTALIDAE POLYVALENT IMMUNE FAB (OVINE)
     Indication: SNAKE BITE
     Dosage: 8 VIALS, SINGLE
     Route: 065
     Dates: start: 2017, end: 2017

REACTIONS (1)
  - Hypopnoea [Recovering/Resolving]

NARRATIVE: CASE EVENT DATE: 2017
